FAERS Safety Report 8765209 (Version 1)
Quarter: 2012Q4

REPORT INFORMATION
  Report Type: 
  Country: US (occurrence: US)
  Receive Date: 20120903
  Receipt Date: 20120903
  Transmission Date: 20130627
  Serious: No
  Sender: FDA-Public Use
  Company Number: US-PFIZER INC-2012214113

PATIENT
  Age: 60 Year
  Sex: Female

DRUGS (4)
  1. PROPANOLOL HCL [Suspect]
     Indication: MIGRAINE
     Dosage: UNK
  2. PROPANOLOL HCL [Suspect]
     Indication: HEART RATE IRREGULAR
  3. ESTROGEN NOS [Concomitant]
     Dosage: UNK
  4. SYNTHROID [Concomitant]
     Dosage: 75 ug, UNK

REACTIONS (2)
  - Heart rate irregular [Recovered/Resolved]
  - Feeling abnormal [Recovered/Resolved]
